FAERS Safety Report 7461665-3 (Version None)
Quarter: 2011Q2

REPORT INFORMATION
  Report Type: 
  Country: None (occurrence: None)
  Receive Date: 20110506
  Receipt Date: 20110424
  Transmission Date: 20111010
  Serious: Yes (Hospitalization, Other)
  Sender: FDA-Public Use
  Company Number: DE-ELI_LILLY_AND_COMPANY-DE201104007364

PATIENT
  Sex: Female

DRUGS (3)
  1. TAVOR [Concomitant]
  2. ZYPREXA [Suspect]
     Indication: HALLUCINATION, AUDITORY
     Dosage: UNK
     Route: 048
     Dates: end: 20100901
  3. ZYPREXA [Suspect]
     Indication: HALLUCINATION, AUDITORY
     Dosage: UNK
     Route: 048

REACTIONS (4)
  - ANAPHYLACTIC SHOCK [None]
  - WEIGHT INCREASED [None]
  - BREAST ENLARGEMENT [None]
  - APATHY [None]
